FAERS Safety Report 22304623 (Version 1)
Quarter: 2023Q2

REPORT INFORMATION
  Report Type: Report from Study
  Country: CO (occurrence: CO)
  Receive Date: 20230510
  Receipt Date: 20230510
  Transmission Date: 20230721
  Serious: Yes (Death, Hospitalization)
  Sender: FDA-Public Use
  Company Number: CO-ELI_LILLY_AND_COMPANY-CO202305003959

PATIENT
  Sex: Male

DRUGS (1)
  1. FORTEO [Suspect]
     Active Substance: TERIPARATIDE
     Indication: Osteoporosis
     Dosage: 20 UG, DAILY
     Route: 058
     Dates: start: 20221008

REACTIONS (7)
  - Cardiac failure [Fatal]
  - Lung disorder [Unknown]
  - Cardiac disorder [Unknown]
  - Renal disorder [Unknown]
  - Cardiac arrest [Unknown]
  - Blood glucose increased [Unknown]
  - Fatigue [Unknown]
